FAERS Safety Report 9123804 (Version 1)
Quarter: 2013Q1

REPORT INFORMATION
  Report Type: Spontaneous
  Country: JP (occurrence: JP)
  Receive Date: 20130227
  Receipt Date: 20130227
  Transmission Date: 20140127
  Serious: Yes (Hospitalization, Other)
  Sender: FDA-Public Use
  Company Number: JP-ROCHE-1195358

PATIENT
  Age: 66 Year
  Sex: Female

DRUGS (2)
  1. LUCENTIS [Suspect]
     Indication: AGE-RELATED MACULAR DEGENERATION
     Route: 050
     Dates: start: 20121211
  2. LUCENTIS [Suspect]
     Route: 050
     Dates: start: 20130212, end: 20130212

REACTIONS (1)
  - Corneal exfoliation [Not Recovered/Not Resolved]
